FAERS Safety Report 12061285 (Version 1)
Quarter: 2016Q1

REPORT INFORMATION
  Report Type: Spontaneous
  Country: US (occurrence: US)
  Receive Date: 20160210
  Receipt Date: 20160210
  Transmission Date: 20160526
  Serious: Yes (Other)
  Sender: FDA-Public Use
  Company Number: US-TEVA-633113USA

PATIENT
  Age: 78 Year
  Sex: Female
  Weight: 89.44 kg

DRUGS (3)
  1. WARFARIN [Suspect]
     Active Substance: WARFARIN
     Indication: CEREBROVASCULAR ACCIDENT
     Dosage: 5MG ON WEDNESDAY AND SATURDAY AND 2.5MG EVERY OTHER DAY OF THE WEEK AT NIGHT
     Route: 065
     Dates: start: 201206
  2. WARFARIN [Suspect]
     Active Substance: WARFARIN
     Indication: ATRIAL FIBRILLATION
  3. LOPRESSOR [Concomitant]
     Active Substance: METOPROLOL TARTRATE
     Indication: CARDIAC DISORDER

REACTIONS (5)
  - Cerebrovascular accident [Unknown]
  - Cardiac pacemaker insertion [Unknown]
  - Pruritus generalised [Recovering/Resolving]
  - International normalised ratio abnormal [Unknown]
  - Prothrombin time abnormal [Unknown]

NARRATIVE: CASE EVENT DATE: 201209
